FAERS Safety Report 5509559-4 (Version None)
Quarter: 2007Q4

REPORT INFORMATION
  Report Type: 
  Country: None (occurrence: None)
  Receive Date: 20071106
  Receipt Date: 20071021
  Transmission Date: 20080405
  Serious: Yes (Death, Hospitalization)
  Sender: FDA-Public Use
  Company Number: 2007RL000475

PATIENT
  Age: 72 Year
  Sex: Male

DRUGS (5)
  1. PROPRANOLOL HCL [Suspect]
     Indication: DRUG USE FOR UNKNOWN INDICATION
     Dosage: 20 MG;Q6H;
     Dates: start: 20051101, end: 20051101
  2. ^ANTI-THYROID MEDICATION^ [Concomitant]
  3. PROPYLTHIOURACIL [Concomitant]
  4. HYDROCORTISONE [Concomitant]
  5. CEFTRIAXONE [Concomitant]

REACTIONS (4)
  - CARDIAC ARREST [None]
  - CIRCULATORY COLLAPSE [None]
  - SINUS BRADYCARDIA [None]
  - UNRESPONSIVE TO STIMULI [None]
